FAERS Safety Report 6735849-3 (Version None)
Quarter: 2010Q2

REPORT INFORMATION
  Report Type: 
  Country: None (occurrence: None)
  Receive Date: 20100521
  Receipt Date: 20100511
  Transmission Date: 20101027
  Serious: Yes (Other)
  Sender: FDA-Public Use
  Company Number: A0844793A

PATIENT
  Sex: Female

DRUGS (4)
  1. TYKERB [Suspect]
     Dosage: 1250MG PER DAY
     Route: 048
     Dates: start: 20100207
  2. XELODA [Concomitant]
  3. CELEBREX [Concomitant]
  4. VITAMINS [Concomitant]

REACTIONS (6)
  - BACK PAIN [None]
  - ERYTHEMA [None]
  - PAIN IN EXTREMITY [None]
  - RASH [None]
  - RASH PRURITIC [None]
  - VAGINAL HAEMORRHAGE [None]
